FAERS Safety Report 18012550 (Version 2)
Quarter: 2021Q2

REPORT INFORMATION
  Report Type: Spontaneous
  Country: VE (occurrence: VE)
  Receive Date: 20200713
  Receipt Date: 20210627
  Transmission Date: 20210717
  Serious: Yes (Other)
  Sender: FDA-Public Use
  Company Number: PHHY2019VE088922

PATIENT
  Sex: Male

DRUGS (1)
  1. GLIVEC [Suspect]
     Active Substance: IMATINIB MESYLATE
     Indication: CHRONIC MYELOID LEUKAEMIA
     Dosage: 4 DF (400 MG (4 OF 100 MG))
     Route: 065

REACTIONS (11)
  - Asthenia [Unknown]
  - Abdominal pain upper [Unknown]
  - Dyspnoea [Unknown]
  - Asphyxia [Unknown]
  - Contusion [Unknown]
  - Pyrexia [Recovering/Resolving]
  - Diarrhoea [Recovering/Resolving]
  - Dizziness [Unknown]
  - Bone pain [Recovering/Resolving]
  - Headache [Recovering/Resolving]
  - Cough [Recovering/Resolving]
